FAERS Safety Report 18576306 (Version 5)
Quarter: 2023Q2

REPORT INFORMATION
  Report Type: Spontaneous
  Country: US (occurrence: US)
  Receive Date: 20201203
  Receipt Date: 20230404
  Transmission Date: 20230722
  Serious: Yes (Other)
  Sender: FDA-Public Use
  Company Number: US-PFIZER INC-2020291750

PATIENT
  Age: 64 Year
  Sex: Female
  Weight: 116.12 kg

DRUGS (4)
  1. XELJANZ XR [Suspect]
     Active Substance: TOFACITINIB CITRATE
     Indication: Rheumatoid arthritis
     Dosage: 8 DF (TAKES EIGHT 11MG TABLETS ON SUNDAYS)
  2. XELJANZ XR [Suspect]
     Active Substance: TOFACITINIB CITRATE
     Dosage: 11 MG, 1X/DAY
     Route: 048
  3. METHOTREXATE [Concomitant]
     Active Substance: METHOTREXATE
     Indication: Rheumatoid arthritis
     Dosage: 8 DF, WEEKLY (8 TABLETS OF 2.5 MG TABLETS, EVERY SUNDAY)
  4. FOLIC ACID [Concomitant]
     Active Substance: FOLIC ACID
     Indication: Rheumatoid arthritis
     Dosage: 1 MG, DAILY

REACTIONS (11)
  - Osteoarthritis [Unknown]
  - Therapeutic product effect incomplete [Unknown]
  - COVID-19 [Recovered/Resolved]
  - Fatigue [Unknown]
  - Musculoskeletal stiffness [Unknown]
  - Swelling [Unknown]
  - Synovial disorder [Unknown]
  - Neck pain [Not Recovered/Not Resolved]
  - Back pain [Not Recovered/Not Resolved]
  - Inflammatory marker increased [Unknown]
  - Intentional overdose [Unknown]

NARRATIVE: CASE EVENT DATE: 20201116
